FAERS Safety Report 11195334 (Version 1)
Quarter: 2015Q2

REPORT INFORMATION
  Report Type: Report from Study
  Country: US (occurrence: None)
  Receive Date: 20150603
  Receipt Date: 20150603
  Transmission Date: 20150821
  Serious: No
  Sender: FDA-Public Use
  Company Number: 2014TASUS000638

PATIENT
  Age: 70 Year
  Sex: Female
  Weight: 65.8 kg

DRUGS (7)
  1. HETLIOZ [Suspect]
     Active Substance: TASIMELTEON
     Indication: CIRCADIAN RHYTHM SLEEP DISORDER
     Dosage: 20 MG, QHS
     Route: 048
     Dates: start: 201411, end: 201501
  2. SYNTHROID [Concomitant]
     Active Substance: LEVOTHYROXINE SODIUM
  3. PRED FORTE (PREDNISOLONE ACETATE) [Concomitant]
  4. COREG [Concomitant]
     Active Substance: CARVEDILOL
  5. SERTRALINE [Suspect]
     Active Substance: SERTRALINE HYDROCHLORIDE
     Indication: PRODUCT USED FOR UNKNOWN INDICATION
  6. PREDNISONE (PREDNISONE ACETATE) [Concomitant]
  7. LISINOPRIL. [Concomitant]
     Active Substance: LISINOPRIL

REACTIONS (5)
  - Unevaluable event [None]
  - Incorrect drug administration duration [None]
  - Insomnia [None]
  - Drug ineffective [None]
  - Gastric disorder [None]

NARRATIVE: CASE EVENT DATE: 201411
